FAERS Safety Report 17303505 (Version 1)
Quarter: 2020Q1

REPORT INFORMATION
  Report Type: Spontaneous
  Country: GB (occurrence: GB)
  Receive Date: 20200122
  Receipt Date: 20200122
  Transmission Date: 20200409
  Serious: Yes (Life-Threatening, Other)
  Sender: FDA-Public Use
  Company Number: GB-GILEAD-2020-0447692

PATIENT
  Age: 60 Year
  Sex: Male
  Weight: 69 kg

DRUGS (10)
  1. IVABRADINE [Suspect]
     Active Substance: IVABRADINE
     Indication: ANGINA PECTORIS
     Dosage: UNK
     Route: 048
  2. CLOPIDOGREL [Concomitant]
     Active Substance: CLOPIDOGREL BISULFATE
  3. SEVOFLURANE. [Suspect]
     Active Substance: SEVOFLURANE
     Indication: ANAESTHESIA
     Route: 048
  4. FENTANYL. [Suspect]
     Active Substance: FENTANYL
     Indication: ANAESTHESIA
     Route: 065
  5. NEBIVOLOL HYDROCHLORIDE [Suspect]
     Active Substance: NEBIVOLOL HYDROCHLORIDE
     Indication: ANGINA PECTORIS
     Dosage: UNK
     Route: 048
  6. SALBUTAMOL [Concomitant]
     Active Substance: ALBUTEROL
  7. LANSOPRAZOLE. [Concomitant]
     Active Substance: LANSOPRAZOLE
  8. ATORVASTATIN CALCIUM. [Concomitant]
     Active Substance: ATORVASTATIN CALCIUM
  9. THIAMINE. [Concomitant]
     Active Substance: THIAMINE
  10. RANOLAZINE. [Suspect]
     Active Substance: RANOLAZINE
     Indication: ANGINA PECTORIS
     Dosage: UNK
     Route: 048

REACTIONS (3)
  - Hypotension [Recovered/Resolved]
  - Product use in unapproved indication [Not Recovered/Not Resolved]
  - Bradycardia [Recovered/Resolved]
